FAERS Safety Report 5264905-4 (Version None)
Quarter: 2007Q1

REPORT INFORMATION
  Report Type: 
  Country: None (occurrence: None)
  Receive Date: 20061117
  Receipt Date: 20060508
  Transmission Date: 20070707
  Serious: Yes (Other)
  Sender: FDA-Public Use
  Company Number: US-JNJFOC-20060501806

PATIENT
  Age: 43 Year
  Sex: Female
  Weight: 74.8435 kg

DRUGS (3)
  1. LEVAQUIN [Suspect]
     Indication: OSTEOMYELITIS
     Dosage: 500 MG, 1 IN  1 DAY, ORAL
     Route: 048
     Dates: start: 20060201, end: 20060505
  2. CLEOCIN (CLINDAMYCIN HYDROCHLORIDE) [Concomitant]
  3. HEPARIN [Concomitant]

REACTIONS (2)
  - LOCAL SWELLING [None]
  - PAIN IN EXTREMITY [None]
